FAERS Safety Report 15221143 (Version 1)
Quarter: 2018Q4

REPORT INFORMATION
  Report Type: Spontaneous
  Country: DE (occurrence: DE)
  Receive Date: 20180731
  Receipt Date: 20180731
  Transmission Date: 20190204
  Serious: Yes (Life-Threatening, Hospitalization)
  Sender: FDA-Public Use
  Company Number: DE-TEVA-2018-DE-932018

PATIENT
  Sex: Male

DRUGS (2)
  1. MST 20 [Suspect]
     Active Substance: MORPHINE SULFATE
     Dosage: 20 MILLIGRAM DAILY;
     Dates: start: 20180117
  2. MST 20 [Suspect]
     Active Substance: MORPHINE SULFATE
     Indication: PAIN
     Dosage: 20 MILLIGRAM DAILY; , BID
     Route: 048

REACTIONS (6)
  - Agitation [Not Recovered/Not Resolved]
  - Oliguria [Not Recovered/Not Resolved]
  - Hypotension [Not Recovered/Not Resolved]
  - Incorrect route of product administration [Unknown]
  - Inadequate aseptic technique in use of product [Not Recovered/Not Resolved]
  - Fluid balance negative [Not Recovered/Not Resolved]

NARRATIVE: CASE EVENT DATE: 20180117
